FAERS Safety Report 8844630 (Version 1)
Quarter: 2012Q4

REPORT INFORMATION
  Report Type: 
  Country: US (occurrence: US)
  Receive Date: 20121017
  Receipt Date: 20121017
  Transmission Date: 20130627
  Serious: No
  Sender: FDA-Public Use
  Company Number: US-PFIZER INC-2012256285

PATIENT
  Age: 63 Year
  Sex: Female

DRUGS (1)
  1. LOPID [Suspect]
     Indication: BLOOD TRIGLYCERIDES
     Dosage: UNK

REACTIONS (1)
  - Pain in extremity [Not Recovered/Not Resolved]
